FAERS Safety Report 25762535 (Version 1)
Quarter: 2025Q3

REPORT INFORMATION
  Report Type: Spontaneous
  Country: GB (occurrence: GB)
  Receive Date: 20250904
  Receipt Date: 20250904
  Transmission Date: 20251021
  Serious: Yes (Other)
  Sender: PFIZER
  Company Number: None

PATIENT
  Age: 64 Year
  Sex: Female
  Weight: 85 kg

DRUGS (3)
  1. RIMEGEPANT [Interacting]
     Active Substance: RIMEGEPANT
     Indication: Migraine prophylaxis
     Dates: end: 20250210
  2. UPADACITINIB [Interacting]
     Active Substance: UPADACITINIB
     Indication: Psoriatic arthropathy
     Dosage: 15 MG, 1X/DAY
     Dates: start: 20250805, end: 20250819
  3. LAXATIVE [SENNOSIDE A+B] [Concomitant]
     Indication: Constipation

REACTIONS (5)
  - Migraine [Recovered/Resolved]
  - Diarrhoea [Recovered/Resolved]
  - Drug interaction [Unknown]
  - Gastrointestinal pain [Unknown]
  - Migraine [Recovered/Resolved]

NARRATIVE: CASE EVENT DATE: 20250805
